FAERS Safety Report 25228995 (Version 3)
Quarter: 2025Q2

REPORT INFORMATION
  Report Type: Spontaneous
  Country: CN (occurrence: CN)
  Receive Date: 20250423
  Receipt Date: 20250504
  Transmission Date: 20250716
  Serious: Yes (Death)
  Sender: SANOFI AVENTIS
  Company Number: CN-SANOFI-02492072

PATIENT
  Age: 44 Year
  Sex: Female

DRUGS (3)
  1. THYMOGLOBULINE [Suspect]
     Active Substance: LAPINE T-LYMPHOCYTE IMMUNE GLOBULIN
     Dosage: 16 DF, Q4D
     Route: 065
     Dates: start: 20250216, end: 2025
  2. ETOPOSIDE [Concomitant]
     Active Substance: ETOPOSIDE
     Indication: Premedication
  3. BUSULFAN [Concomitant]
     Active Substance: BUSULFAN
     Indication: Premedication
     Dates: start: 20250212, end: 20250214

REACTIONS (3)
  - Infection [Fatal]
  - Pyrexia [Fatal]
  - Inappropriate schedule of product administration [Unknown]

NARRATIVE: CASE EVENT DATE: 20250101
